FAERS Safety Report 14290219 (Version 4)
Quarter: 2018Q1

REPORT INFORMATION
  Report Type: Report from Study
  Country: CA (occurrence: CA)
  Receive Date: 20171215
  Receipt Date: 20180301
  Transmission Date: 20180509
  Serious: Yes (Hospitalization, Other)
  Sender: FDA-Public Use
  Company Number: PHHY2016CA006953

PATIENT
  Sex: Male

DRUGS (4)
  1. ACLASTA [Suspect]
     Active Substance: ZOLEDRONIC ACID
     Dosage: 1 DF(5 MG/100ML)
     Route: 042
     Dates: start: 20180221
  2. ACLASTA [Suspect]
     Active Substance: ZOLEDRONIC ACID
     Dosage: 1 DF (5MG/100ML), UNK
     Route: 042
     Dates: start: 20161220
  3. OXYCONTIN [Concomitant]
     Active Substance: OXYCODONE HYDROCHLORIDE
     Indication: BACK PAIN
     Dosage: 10 MG, QID
     Route: 065
  4. ACLASTA [Suspect]
     Active Substance: ZOLEDRONIC ACID
     Indication: OSTEOPOROSIS
     Dosage: 1 DF (5MG/100ML), UNK
     Route: 042
     Dates: start: 20160114

REACTIONS (10)
  - Dyspnoea [Unknown]
  - Plasma cell myeloma [Recovered/Resolved]
  - Chills [Unknown]
  - Pneumonia [Recovered/Resolved]
  - Malaise [Not Recovered/Not Resolved]
  - Blood pressure increased [Unknown]
  - Pain [Not Recovered/Not Resolved]
  - Back pain [Unknown]
  - Nasopharyngitis [Not Recovered/Not Resolved]
  - Pyrexia [Unknown]

NARRATIVE: CASE EVENT DATE: 2017
